FAERS Safety Report 5297467-6 (Version None)
Quarter: 2007Q2

REPORT INFORMATION
  Report Type: 
  Country: None (occurrence: None)
  Receive Date: 20070416
  Receipt Date: 20070404
  Transmission Date: 20071010
  Serious: Yes (Other)
  Sender: FDA-Public Use
  Company Number: US-JNJFOC-20070401277

PATIENT
  Sex: Male
  Weight: 61.24 kg

DRUGS (12)
  1. INFLIXIMAB [Suspect]
     Route: 042
  2. INFLIXIMAB [Suspect]
     Route: 042
  3. INFLIXIMAB [Suspect]
     Route: 042
  4. INFLIXIMAB [Suspect]
     Route: 042
  5. INFLIXIMAB [Suspect]
     Route: 042
  6. INFLIXIMAB [Suspect]
     Route: 042
  7. INFLIXIMAB [Suspect]
     Indication: CROHN'S DISEASE
     Route: 042
  8. MESALAMINE [Concomitant]
     Indication: CROHN'S DISEASE
  9. ANTIBIOTICS [Concomitant]
     Indication: CROHN'S DISEASE
  10. PREDNISONE TAB [Concomitant]
     Indication: CROHN'S DISEASE
  11. ACETAMINOPHEN [Concomitant]
     Indication: PREMEDICATION
     Route: 065
     Dates: start: 20030305, end: 20031117
  12. ANTIHISTAMINE [Concomitant]
     Indication: PREMEDICATION
     Route: 065
     Dates: start: 20030305, end: 20031117

REACTIONS (1)
  - HEPATIC NEOPLASM MALIGNANT [None]
